FAERS Safety Report 8523978-3 (Version None)
Quarter: 2012Q3

REPORT INFORMATION
  Report Type: 
  Country: None (occurrence: None)
  Receive Date: 20120720
  Receipt Date: 20120712
  Transmission Date: 20120928
  Serious: Yes (Hospitalization, Other)
  Sender: FDA-Public Use
  Company Number: ES-ELI_LILLY_AND_COMPANY-ES201207004519

PATIENT
  Sex: Male
  Weight: 74 kg

DRUGS (13)
  1. SINGULAIR [Concomitant]
     Indication: CHRONIC OBSTRUCTIVE PULMONARY DISEASE
     Dosage: UNK, QD
     Route: 048
  2. FLUMIL                             /00082801/ [Concomitant]
     Indication: CHRONIC OBSTRUCTIVE PULMONARY DISEASE
     Dosage: UNK, QD
     Route: 048
  3. ATROVENT [Concomitant]
     Indication: CHRONIC OBSTRUCTIVE PULMONARY DISEASE
     Dosage: UNK
  4. SPIRIVA [Concomitant]
     Indication: CHRONIC OBSTRUCTIVE PULMONARY DISEASE
     Dosage: UNK
  5. FLUTICASONE PROPIONATE/SALMETEROL [Concomitant]
     Indication: CHRONIC OBSTRUCTIVE PULMONARY DISEASE
     Dosage: UNK, BID
  6. FORTEO [Suspect]
     Indication: OSTEOPOROSIS
     Dosage: 20 UG, QD
     Dates: start: 20100705
  7. BRAINAL [Concomitant]
     Indication: NERVOUS SYSTEM DISORDER
     Dosage: UNK, BID
     Route: 048
  8. DEPAKENE [Concomitant]
     Indication: EPILEPSY
     Dosage: 500 MG, BID
     Route: 048
     Dates: start: 20120501
  9. ACFOL [Concomitant]
     Dosage: UNK, BID
     Route: 048
     Dates: start: 20120501
  10. PLAVIX [Concomitant]
     Indication: CEREBRAL INFARCTION
     Dosage: 75 MG, QD
     Route: 048
  11. FERROGRADUMET [Concomitant]
     Dosage: UNK, BID
     Route: 048
     Dates: start: 20120501
  12. CITALOPRAM HYDROBROMIDE [Concomitant]
     Indication: SLEEP DISORDER
     Dosage: 20 MG, QD
     Route: 048
  13. OXYGEN [Concomitant]

REACTIONS (6)
  - EPILEPSY [None]
  - ASPARTATE AMINOTRANSFERASE INCREASED [None]
  - HAEMOGLOBIN DECREASED [None]
  - HAEMATOCRIT DECREASED [None]
  - RED BLOOD CELL COUNT DECREASED [None]
  - LABORATORY TEST ABNORMAL [None]
